FAERS Safety Report 7518218-8 (Version None)
Quarter: 2011Q2

REPORT INFORMATION
  Report Type: 
  Country: None (occurrence: None)
  Receive Date: 20110531
  Receipt Date: 20110531
  Transmission Date: 20111010
  Serious: Yes (Other)
  Sender: FDA-Public Use
  Company Number: None

PATIENT
  Age: 33 Year
  Sex: Male
  Weight: 113.3993 kg

DRUGS (1)
  1. CYMBALTA [Suspect]
     Indication: DEPRESSION
     Dosage: 60MG. 1 X A DAY
     Dates: start: 20110104, end: 20110513

REACTIONS (4)
  - STARING [None]
  - IMPAIRED WORK ABILITY [None]
  - PARAESTHESIA [None]
  - UNEVALUABLE EVENT [None]
